FAERS Safety Report 12896112 (Version 5)
Quarter: 2018Q3

REPORT INFORMATION
  Report Type: Spontaneous
  Country: US (occurrence: US)
  Receive Date: 20161031
  Receipt Date: 20180710
  Transmission Date: 20181010
  Serious: Yes (Other)
  Sender: FDA-Public Use
  Company Number: US-JAZZ-2016-US-016509

PATIENT
  Age: 35 Year
  Sex: Female

DRUGS (12)
  1. XYREM [Suspect]
     Active Substance: SODIUM OXYBATE
     Indication: NARCOLEPSY
     Dosage: 2.25G, BID
     Route: 048
     Dates: start: 201506, end: 201506
  2. XYREM [Suspect]
     Active Substance: SODIUM OXYBATE
     Dosage: 4.5G, BID
     Route: 048
     Dates: start: 201509
  3. SYNTHROID [Suspect]
     Active Substance: LEVOTHYROXINE SODIUM
     Dosage: 100 ?G
     Dates: start: 2016, end: 2016
  4. SYNTHROID [Suspect]
     Active Substance: LEVOTHYROXINE SODIUM
     Indication: HYPOTHYROIDISM
     Dosage: 25 ?G
     Route: 048
     Dates: start: 2016, end: 2016
  5. SYNTHROID [Suspect]
     Active Substance: LEVOTHYROXINE SODIUM
     Dosage: 75 ?G
     Route: 048
     Dates: start: 2016, end: 2016
  6. CLONAZEPAM. [Concomitant]
     Active Substance: CLONAZEPAM
  7. NICOTINE POLACRILEX [Concomitant]
     Active Substance: NICOTINE
  8. XYREM [Suspect]
     Active Substance: SODIUM OXYBATE
     Dosage: DOSE ADJUSTMENTS
     Route: 048
     Dates: start: 2015, end: 2015
  9. MOBIC [Concomitant]
     Active Substance: MELOXICAM
  10. ADDERALL [Concomitant]
     Active Substance: AMPHETAMINE ASPARTATE\AMPHETAMINE SULFATE\DEXTROAMPHETAMINE SACCHARATE\DEXTROAMPHETAMINE SULFATE
  11. LEVOTHYROXINE. [Suspect]
     Active Substance: LEVOTHYROXINE
     Indication: PRODUCT USED FOR UNKNOWN INDICATION
  12. PAROXETINE HYDROCHLORIDE. [Concomitant]
     Active Substance: PAROXETINE HYDROCHLORIDE

REACTIONS (13)
  - Disturbance in attention [Not Recovered/Not Resolved]
  - Tremor [Recovered/Resolved]
  - Hypoaesthesia [Not Recovered/Not Resolved]
  - Malaise [Unknown]
  - Paraesthesia [Not Recovered/Not Resolved]
  - Anxiety [Unknown]
  - Hypothyroidism [Unknown]
  - Anger [Recovered/Resolved]
  - Bulimia nervosa [Recovering/Resolving]
  - Confusional state [Not Recovered/Not Resolved]
  - Weight decreased [Unknown]
  - Carpal tunnel syndrome [Unknown]
  - Condition aggravated [Unknown]

NARRATIVE: CASE EVENT DATE: 201601
